FAERS Safety Report 8351692-6 (Version None)
Quarter: 2012Q2

REPORT INFORMATION
  Report Type: 
  Country: None (occurrence: None)
  Receive Date: 20120511
  Receipt Date: 20120502
  Transmission Date: 20120825
  Serious: No
  Sender: FDA-Public Use
  Company Number: US-BIOGENIDEC-2012BI015610

PATIENT
  Age: 62 Year
  Sex: Female

DRUGS (2)
  1. TYSABRI [Suspect]
     Indication: MULTIPLE SCLEROSIS
     Route: 042
     Dates: start: 20070911, end: 20080115
  2. TYSABRI [Suspect]
     Route: 042
     Dates: start: 20120411

REACTIONS (3)
  - WEIGHT DECREASED [None]
  - MULTIPLE ALLERGIES [None]
  - PHARYNGITIS STREPTOCOCCAL [None]
